FAERS Safety Report 5300039-8 (Version None)
Quarter: 2007Q2

REPORT INFORMATION
  Report Type: 
  Country: None (occurrence: None)
  Receive Date: 20070410
  Receipt Date: 20070330
  Transmission Date: 20071010
  Serious: Yes (Hospitalization)
  Sender: FDA-Public Use
  Company Number: B0461002A

PATIENT
  Age: 24 Year
  Sex: Female
  Weight: 48.8978 kg

DRUGS (7)
  1. PAXIL [Suspect]
     Indication: DEPRESSION
     Dosage: UNK / SEE DOSAGE TEXT / ORAL
     Route: 048
     Dates: start: 20061222
  2. TRAZODONE HYDROCHLORIDE [Concomitant]
  3. ZOLPIDEM [Concomitant]
  4. TANDOSPIRON CITRATE [Concomitant]
  5. MOSAPRIDE CITRATE [Concomitant]
  6. ALPRAZOLAM [Concomitant]
  7. SULPIRIDE [Concomitant]

REACTIONS (4)
  - CENTRAL NERVOUS SYSTEM STIMULATION [None]
  - IMPULSIVE BEHAVIOUR [None]
  - INSOMNIA [None]
  - IRRITABILITY [None]
